FAERS Safety Report 8611225-3 (Version None)
Quarter: 2012Q3

REPORT INFORMATION
  Report Type: 
  Country: None (occurrence: None)
  Receive Date: 20120806
  Receipt Date: 20120727
  Transmission Date: 20120928
  Serious: Yes (Other)
  Sender: FDA-Public Use
  Company Number: 2012032970

PATIENT
  Sex: Female

DRUGS (2)
  1. PRIVIGEN [Suspect]
     Indication: SECONDARY IMMUNODEFICIENCY
     Dosage: 200 ML, 200 ML OVER 90 MINUTES
  2. ATERENOL (NOREPINEPHINE HYDROFCHLORIDE) [Concomitant]

REACTIONS (5)
  - BRONCHOSPASM [None]
  - OFF LABEL USE [None]
  - DYSPNOEA [None]
  - HYPERTENSIVE CRISIS [None]
  - BLOOD PRESSURE SYSTOLIC INCREASED [None]
